FAERS Safety Report 13518828 (Version 2)
Quarter: 2017Q2

REPORT INFORMATION
  Report Type: Spontaneous
  Country: DE (occurrence: DE)
  Receive Date: 20170505
  Receipt Date: 20170516
  Transmission Date: 20170830
  Serious: Yes (Death, Hospitalization, Other)
  Sender: FDA-Public Use
  Company Number: DE-BRISTOL-MYERS SQUIBB COMPANY-BMS-2017-020047

PATIENT
  Sex: Female
  Weight: 60 kg

DRUGS (2)
  1. NIVOLUMAB [Suspect]
     Active Substance: NIVOLUMAB
     Indication: METASTATIC MALIGNANT MELANOMA
     Dosage: 1 MG/KG, UNK
     Route: 042
     Dates: start: 20160830
  2. YERVOY [Suspect]
     Active Substance: IPILIMUMAB
     Indication: METASTATIC MALIGNANT MELANOMA
     Dosage: 3 MG/KG, UNK
     Route: 042
     Dates: start: 20160830

REACTIONS (9)
  - Hepatic hypertrophy [Fatal]
  - Hepatotoxicity [Fatal]
  - Prothrombin time prolonged [Fatal]
  - Transfusion [Fatal]
  - Liver disorder [Fatal]
  - Hepatic failure [Unknown]
  - Ascites [Fatal]
  - Ocular icterus [Fatal]
  - Yellow skin [Fatal]
